FAERS Safety Report 6926950-X (Version None)
Quarter: 2010Q3

REPORT INFORMATION
  Report Type: 
  Country: None (occurrence: None)
  Receive Date: 20100816
  Receipt Date: 20100708
  Transmission Date: 20110219
  Serious: No
  Sender: FDA-Public Use
  Company Number: US-ABBOTT-10P-163-0656126-00

PATIENT
  Sex: Female
  Weight: 67.646 kg

DRUGS (1)
  1. SIMCOR [Suspect]
     Indication: HYPERLIPIDAEMIA
     Dosage: 500/20MG AT BEDIME
     Dates: start: 20100608

REACTIONS (4)
  - FATIGUE [None]
  - FLUSHING [None]
  - PRURITUS [None]
  - VISION BLURRED [None]
